FAERS Safety Report 7503570-X (Version None)
Quarter: 2011Q1

REPORT INFORMATION
  Report Type: 
  Country: None (occurrence: None)
  Receive Date: 20110322
  Receipt Date: 20101207
  Transmission Date: 20110831
  Serious: Yes (Hospitalization)
  Sender: FDA-Public Use
  Company Number: UTC-003054

PATIENT
  Age: 68 Year
  Sex: Female

DRUGS (4)
  1. DIURETICS (DIURETICS) [Concomitant]
  2. TYVASO [Suspect]
     Indication: PULMONARY ARTERIAL HYPERTENSION
     Dosage: INHALATION
     Route: 055
     Dates: start: 20091118, end: 20101130
  3. REVATIO [Concomitant]
  4. LETAIRIS [Concomitant]

REACTIONS (1)
  - LOSS OF CONSCIOUSNESS [None]
